FAERS Safety Report 21475492 (Version 4)
Quarter: 2024Q3

REPORT INFORMATION
  Report Type: Report from Study
  Country: DE (occurrence: DE)
  Receive Date: 20221019
  Receipt Date: 20240828
  Transmission Date: 20241016
  Serious: Yes (Hospitalization)
  Sender: ROCHE
  Company Number: DE-ROCHE-2750910

PATIENT
  Age: 52 Year
  Sex: Male

DRUGS (4)
  1. OCREVUS [Suspect]
     Active Substance: OCRELIZUMAB
     Indication: Primary progressive multiple sclerosis
     Dosage: HE RECEIVED THE LAST INFUSION ON 10/FEB/2021. RECENT DOSE WAS ON 04/MAY/2023
     Route: 042
     Dates: start: 20180701
  2. CORTISONE [Suspect]
     Active Substance: CORTISONE
     Indication: Multiple sclerosis relapse
     Dosage: FOR 3 DAYS
     Route: 065
     Dates: start: 20210406, end: 20210408
  3. PREGABALIN [Concomitant]
     Active Substance: PREGABALIN
  4. TAMSULOSIN [Concomitant]
     Active Substance: TAMSULOSIN

REACTIONS (3)
  - Trigeminal neuralgia [Recovered/Resolved]
  - Muscular weakness [Not Recovered/Not Resolved]
  - COVID-19 [Recovered/Resolved]
